FAERS Safety Report 6234990-1 (Version None)
Quarter: 2009Q2

REPORT INFORMATION
  Report Type: 
  Country: None (occurrence: None)
  Receive Date: 20090618
  Receipt Date: 20090611
  Transmission Date: 20091009
  Serious: Yes (Life-Threatening)
  Sender: FDA-Public Use
  Company Number: US-GENENTECH-271064

PATIENT
  Sex: Female

DRUGS (7)
  1. XOLAIR [Suspect]
     Indication: ASTHMA
     Dosage: 2 UNK, Q2W
     Route: 058
  2. FLOVENT [Concomitant]
     Indication: ASTHMA
     Dosage: 110 A?G, BID
  3. FORADIL [Concomitant]
     Indication: ASTHMA
     Dosage: 12 A?G, QD
  4. ZYRTEC [Concomitant]
     Indication: HYPERSENSITIVITY
     Dosage: 10 MG, QD
  5. PREMARIN [Concomitant]
     Indication: HORMONE REPLACEMENT THERAPY
     Dosage: .625 UNK, QD
  6. PROTONIX [Concomitant]
     Indication: GASTROOESOPHAGEAL REFLUX DISEASE
     Dosage: 40 MG, QD
     Route: 048
  7. ESTRACE [Concomitant]
     Indication: HORMONE REPLACEMENT THERAPY
     Dosage: 1 G, Q3W

REACTIONS (4)
  - FLUSHING [None]
  - HYPERSENSITIVITY [None]
  - SWELLING FACE [None]
  - THROAT TIGHTNESS [None]
